FAERS Safety Report 9013464 (Version 1)
Quarter: 2013Q1

REPORT INFORMATION
  Report Type: Spontaneous
  Country: US (occurrence: None)
  Receive Date: 20130107
  Receipt Date: 20130107
  Transmission Date: 20140127
  Serious: Yes (Other)
  Sender: FDA-Public Use
  Company Number: None

PATIENT
  Sex: Female

DRUGS (3)
  1. PEGASYS [Suspect]
     Indication: HEPATITIS C
     Dosage: VICTRELLIS EVERY 8 HR PO
     Route: 058
     Dates: start: 201208
  2. RIBASPHERE [Suspect]
     Dosage: PEGAYS 180MCG WEEKLY SQ
     Route: 048
     Dates: start: 201208
  3. VICTRELLIS [Suspect]
     Dosage: RIBASPHERE 600 TWICE DAILY PO
     Route: 048
     Dates: start: 201208

REACTIONS (2)
  - Abdominal pain [None]
  - Faeces pale [None]
